FAERS Safety Report 19561343 (Version 1)
Quarter: 2021Q3

REPORT INFORMATION
  Report Type: Spontaneous
  Country: US (occurrence: US)
  Receive Date: 20210716
  Receipt Date: 20210716
  Transmission Date: 20211014
  Serious: No
  Sender: FDA-Public Use
  Company Number: None

PATIENT
  Age: 56 Year
  Sex: Female
  Weight: 49.1 kg

DRUGS (1)
  1. CISPLATIN. [Suspect]
     Active Substance: CISPLATIN
     Dates: end: 20201013

REACTIONS (3)
  - Pharyngeal ulceration [None]
  - Oropharyngeal pain [None]
  - Inflammation [None]

NARRATIVE: CASE EVENT DATE: 20210213
